FAERS Safety Report 5141710-0 (Version None)
Quarter: 2006Q4

REPORT INFORMATION
  Report Type: 
  Country: None (occurrence: None)
  Receive Date: 20061026
  Receipt Date: 20060629
  Transmission Date: 20070319
  Serious: No
  Sender: FDA-Public Use
  Company Number: 2778

PATIENT
  Age: 24 Year
  Sex: Male

DRUGS (2)
  1. AMNESTEEM [Suspect]
     Indication: HIDRADENITIS
     Dosage: 40 MG, QD, PO
     Route: 048
     Dates: start: 20060501, end: 20060526
  2. VENLAFAXINE [Concomitant]

REACTIONS (5)
  - DEPRESSION [None]
  - DRUG EFFECT DECREASED [None]
  - PAIN [None]
  - SUICIDAL IDEATION [None]
  - TREATMENT NONCOMPLIANCE [None]
